FAERS Safety Report 9776514 (Version 1)
Quarter: 2013Q4

REPORT INFORMATION
  Report Type: Spontaneous
  Country: GT (occurrence: GT)
  Receive Date: 20131220
  Receipt Date: 20131220
  Transmission Date: 20140711
  Serious: Yes (Other)
  Sender: FDA-Public Use
  Company Number: GT-JNJFOC-20131212985

PATIENT
  Sex: Male

DRUGS (1)
  1. VISINE [Suspect]
     Indication: OCULAR HYPERAEMIA
     Route: 047
     Dates: start: 201311, end: 201311

REACTIONS (7)
  - Hypersensitivity [Recovered/Resolved with Sequelae]
  - Visual impairment [Recovered/Resolved with Sequelae]
  - Eye irritation [Recovered/Resolved with Sequelae]
  - Eye pruritus [Recovered/Resolved with Sequelae]
  - Inappropriate schedule of drug administration [Unknown]
  - Eye pain [Recovered/Resolved with Sequelae]
  - Ocular hyperaemia [Recovered/Resolved with Sequelae]
